FAERS Safety Report 5793385-5 (Version None)
Quarter: 2008Q2

REPORT INFORMATION
  Report Type: 
  Country: None (occurrence: None)
  Receive Date: 20080627
  Receipt Date: 20080616
  Transmission Date: 20081010
  Serious: Yes (Death, Hospitalization)
  Sender: FDA-Public Use
  Company Number: CH-ROCHE-570465

PATIENT
  Sex: Female

DRUGS (3)
  1. XELODA [Suspect]
     Route: 048
     Dates: start: 20040901, end: 20080301
  2. CISPLATIN [Concomitant]
     Dates: end: 20080301
  3. GEMZAR [Concomitant]
     Dates: start: 20080301

REACTIONS (4)
  - COAGULOPATHY [None]
  - HEPATIC FAILURE [None]
  - NEOPLASM PROGRESSION [None]
  - PULMONARY EMBOLISM [None]
